FAERS Safety Report 23195093 (Version 1)
Quarter: 2023Q4

REPORT INFORMATION
  Report Type: Spontaneous
  Country: PT (occurrence: PT)
  Receive Date: 20231117
  Receipt Date: 20231117
  Transmission Date: 20240110
  Serious: Yes (Disabling, Other)
  Sender: FDA-Public Use
  Company Number: None

PATIENT
  Age: 59 Year
  Sex: Female

DRUGS (2)
  1. PYLERA [Suspect]
     Active Substance: BISMUTH SUBCITRATE POTASSIUM\METRONIDAZOLE\TETRACYCLINE HYDROCHLORIDE
     Indication: Bacterial disease carrier
     Dosage: DAILY DOSE: 12.0 DF, TOTAL: 24.0 DF, FORM: UNKNOWN
     Route: 048
     Dates: start: 20230419, end: 20230421
  2. LOSARTAN [Concomitant]
     Active Substance: LOSARTAN
     Indication: Bacterial disease carrier
     Route: 048

REACTIONS (9)
  - Pharyngeal swelling [Recovered/Resolved]
  - Swelling face [Recovered/Resolved]
  - Acne [Recovered/Resolved]
  - Pain [Not Recovered/Not Resolved]
  - Peripheral swelling [Recovered/Resolved]
  - Asthenia [Recovering/Resolving]
  - Pyrexia [Recovered/Resolved]
  - Pruritus [Recovering/Resolving]
  - Fatigue [Recovering/Resolving]

NARRATIVE: CASE EVENT DATE: 20230101
